FAERS Safety Report 7351179-3 (Version None)
Quarter: 2011Q1

REPORT INFORMATION
  Report Type: 
  Country: None (occurrence: None)
  Receive Date: 20110304
  Receipt Date: 20110225
  Transmission Date: 20110831
  Serious: Yes (Hospitalization, Other)
  Sender: FDA-Public Use
  Company Number: 1000019025

PATIENT
  Age: 88 Year
  Sex: Female

DRUGS (8)
  1. CENTRUM (MULTIVITAMIN) (MULTIVITAMIN) [Concomitant]
  2. LEXAPRO [Suspect]
     Indication: DEPRESSION
     Dosage: ORAL
     Route: 048
  3. FOLIC ACID [Concomitant]
  4. TRANXENE [Concomitant]
  5. SOLIRIS [Suspect]
     Indication: PAROXYSMAL NOCTURNAL HAEMOGLOBINURIA
     Dosage: (600 MG (600 MG, 1 IN 1 WK), INTRAVENOUS (NOT OTHERWISE SPECIFIED)) (900 MG (1 IN 2 WK), INTRAVENOUS
     Route: 042
     Dates: start: 20090407
  6. SOLIRIS [Suspect]
     Indication: PAROXYSMAL NOCTURNAL HAEMOGLOBINURIA
     Dosage: (600 MG (600 MG, 1 IN 1 WK), INTRAVENOUS (NOT OTHERWISE SPECIFIED)) (900 MG (1 IN 2 WK), INTRAVENOUS
     Route: 042
     Dates: start: 20090310, end: 20090301
  7. LIPITOR [Concomitant]
  8. ARIMIDEX (ANASTROZOLE) (ANASTROZOLE) [Concomitant]

REACTIONS (10)
  - BREAST CANCER [None]
  - ERYTHEMA [None]
  - SKIN EXFOLIATION [None]
  - PLATELET COUNT DECREASED [None]
  - BLOOD BILIRUBIN INCREASED [None]
  - ANAEMIA [None]
  - HAEMORRHOIDS [None]
  - TINNITUS [None]
  - RECTAL HAEMORRHAGE [None]
  - BLOOD LACTATE DEHYDROGENASE INCREASED [None]
